FAERS Safety Report 6363226-6 (Version None)
Quarter: 2009Q3

REPORT INFORMATION
  Report Type: 
  Country: None (occurrence: None)
  Receive Date: 20090919
  Receipt Date: 20090703
  Transmission Date: 20100115
  Serious: No
  Sender: FDA-Public Use
  Company Number: US-ABBOTT-09P-163-0581825-00

PATIENT
  Sex: Female
  Weight: 66.738 kg

DRUGS (7)
  1. HUMIRA [Suspect]
     Indication: CROHN'S DISEASE
     Dates: start: 20060412
  2. HUMIRA [Suspect]
  3. ZYRTEC-D 12 HOUR [Concomitant]
  4. EFFEXOR [Concomitant]
  5. HORMONES NOS [Concomitant]
  6. VITAMIN B-12 [Concomitant]
  7. OTHER MEDICINES [Concomitant]
     Indication: DRUG USE FOR UNKNOWN INDICATION

REACTIONS (11)
  - CONFUSIONAL STATE [None]
  - HYPERSOMNIA [None]
  - HYPOAESTHESIA [None]
  - INJECTION SITE DISCOLOURATION [None]
  - INJECTION SITE ERYTHEMA [None]
  - INJECTION SITE IRRITATION [None]
  - INJECTION SITE PRURITUS [None]
  - INJECTION SITE REACTION [None]
  - INJECTION SITE WARMTH [None]
  - LISTLESS [None]
  - URTICARIA [None]
